FAERS Safety Report 12249099 (Version 1)
Quarter: 2016Q2

REPORT INFORMATION
  Report Type: Spontaneous
  Country: US (occurrence: US)
  Receive Date: 20160408
  Receipt Date: 20160408
  Transmission Date: 20160815
  Serious: No
  Sender: FDA-Public Use
  Company Number: US-WARNER CHILCOTT, LLC-1050373

PATIENT
  Age: 62 Year
  Sex: Female

DRUGS (3)
  1. FEMRING [Suspect]
     Active Substance: ESTRADIOL ACETATE
     Indication: MOOD SWINGS
     Route: 067
     Dates: start: 201508
  2. FEMRING [Suspect]
     Active Substance: ESTRADIOL ACETATE
     Indication: HOT FLUSH
     Route: 067
     Dates: start: 201508
  3. FEMRING [Suspect]
     Active Substance: ESTRADIOL ACETATE
     Indication: LIBIDO DECREASED
     Route: 067
     Dates: start: 201508

REACTIONS (2)
  - Drug ineffective [Not Recovered/Not Resolved]
  - Oral mucosal blistering [None]
